FAERS Safety Report 7285972-2 (Version None)
Quarter: 2011Q1

REPORT INFORMATION
  Report Type: 
  Country: None (occurrence: None)
  Receive Date: 20110210
  Receipt Date: 20110207
  Transmission Date: 20110831
  Serious: Yes (Hospitalization, Other)
  Sender: FDA-Public Use
  Company Number: US-ROXANE LABORATORIES, INC.-2011-RO-00149RO

PATIENT
  Age: 56 Year
  Sex: Male

DRUGS (4)
  1. LITHIUM CARBONATE [Suspect]
     Dosage: 900 MG
  2. CLOZAPINE [Suspect]
     Indication: DELUSION
     Dosage: 400 MG
  3. CLOZAPINE [Suspect]
     Indication: HALLUCINATION, AUDITORY
  4. LITHIUM CARBONATE [Suspect]
     Indication: SCHIZOAFFECTIVE DISORDER
     Dosage: 600 MG

REACTIONS (3)
  - LEUKOCYTOSIS [None]
  - DELUSION [None]
  - HALLUCINATION, AUDITORY [None]
